FAERS Safety Report 4421797-0 (Version None)
Quarter: 2004Q3

REPORT INFORMATION
  Report Type: 
  Country: None (occurrence: None)
  Receive Date: 20040806
  Receipt Date: 20040729
  Transmission Date: 20050211
  Serious: Yes (Death, Life-Threatening, Hospitalization, Disabling, Other)
  Sender: FDA-Public Use
  Company Number: 2004-05-2102

PATIENT
  Age: 31 Year
  Sex: Female

DRUGS (2)
  1. TEMODAL [Suspect]
     Indication: ANAPLASTIC ASTROCYTOMA
     Dosage: 145-100 MG* ORAL
     Route: 048
     Dates: start: 20031224, end: 20040615
  2. MEDROL [Concomitant]

REACTIONS (2)
  - LYMPHOCYTE COUNT DECREASED [None]
  - PNEUMOCYSTIS CARINII INFECTION [None]
